FAERS Safety Report 23930201 (Version 2)
Quarter: 2024Q2

REPORT INFORMATION
  Report Type: Spontaneous
  Country: US (occurrence: US)
  Receive Date: 20240602
  Receipt Date: 20240604
  Transmission Date: 20240716
  Serious: Yes (Life-Threatening, Hospitalization, Other)
  Sender: FDA-Public Use
  Company Number: US-AUROBINDO-AUR-APL-2024-026158

PATIENT
  Age: 27 Year
  Sex: Male

DRUGS (1)
  1. LOPERAMIDE [Suspect]
     Active Substance: LOPERAMIDE
     Indication: Product used for unknown indication
     Dosage: 96 MILLIGRAM
     Route: 065

REACTIONS (11)
  - Acute kidney injury [Recovering/Resolving]
  - Cardiac failure high output [Recovering/Resolving]
  - Distributive shock [Recovering/Resolving]
  - Lactic acidosis [Unknown]
  - Multiple organ dysfunction syndrome [Recovering/Resolving]
  - Metabolic acidosis [Unknown]
  - Pancreatitis [Unknown]
  - Respiratory alkalosis [Recovering/Resolving]
  - Incorrect dose administered [Recovering/Resolving]
  - Overdose [Unknown]
  - Toxicity to various agents [Unknown]

NARRATIVE: CASE EVENT DATE: 20230101
